FAERS Safety Report 13572534 (Version 1)
Quarter: 2017Q2

REPORT INFORMATION
  Report Type: Spontaneous
  Country: US (occurrence: US)
  Receive Date: 20170523
  Receipt Date: 20170523
  Transmission Date: 20170830
  Serious: No
  Sender: FDA-Public Use
  Company Number: None

PATIENT

DRUGS (1)
  1. BZK ANTISEPTIC TOWELETTE [Suspect]
     Active Substance: BENZALKONIUM CHLORIDE
     Indication: INFECTION PROPHYLAXIS
     Dosage: QUANTITY:1 TOWELLETTE PACKET;OTHER FREQUENCY:FOR DISINFECTING;?
     Route: 061
     Dates: start: 20170511, end: 20170511

REACTIONS (5)
  - Product label issue [None]
  - Product formulation issue [None]
  - Product substitution issue [None]
  - Product label confusion [None]
  - Product odour abnormal [None]

NARRATIVE: CASE EVENT DATE: 20170511
